FAERS Safety Report 15814751 (Version 3)
Quarter: 2019Q1

REPORT INFORMATION
  Report Type: Spontaneous
  Country: US (occurrence: US)
  Receive Date: 20190111
  Receipt Date: 20190228
  Transmission Date: 20190417
  Serious: Yes (Other)
  Sender: FDA-Public Use
  Company Number: US-VIFOR (INTERNATIONAL) INC.-VIT-2019-00135

PATIENT
  Sex: Female

DRUGS (8)
  1. TRESIBA [Concomitant]
     Active Substance: INSULIN DEGLUDEC
  2. BABY ASPIRIN [Concomitant]
     Active Substance: ASPIRIN
  3. CARBATROL [Concomitant]
     Active Substance: CARBAMAZEPINE
  4. ENTRESTO [Concomitant]
     Active Substance: SACUBITRIL\VALSARTAN
     Indication: CARDIAC FAILURE
  5. METFORMIN [Concomitant]
     Active Substance: METFORMIN HYDROCHLORIDE
     Indication: TYPE 2 DIABETES MELLITUS
  6. LASIX [Concomitant]
     Active Substance: FUROSEMIDE
     Indication: ELECTROLYTE IMBALANCE
  7. VELTASSA [Suspect]
     Active Substance: PATIROMER
     Dates: start: 201811
  8. VELTASSA [Suspect]
     Active Substance: PATIROMER
     Indication: PRODUCT USED FOR UNKNOWN INDICATION
     Dates: start: 20180812

REACTIONS (10)
  - Sinus congestion [Not Recovered/Not Resolved]
  - Weight increased [Unknown]
  - Constipation [Recovered/Resolved]
  - Faecaloma [Unknown]
  - Haemorrhoidal haemorrhage [Unknown]
  - Off label use [Unknown]
  - Visual impairment [Not Recovered/Not Resolved]
  - Blood potassium increased [Unknown]
  - Diabetic neuropathy [Unknown]
  - Photophobia [Unknown]

NARRATIVE: CASE EVENT DATE: 2018
